FAERS Safety Report 5426355-7 (Version None)
Quarter: 2007Q3

REPORT INFORMATION
  Report Type: 
  Country: None (occurrence: None)
  Receive Date: 20070827
  Receipt Date: 20070815
  Transmission Date: 20080115
  Serious: Yes (Other)
  Sender: FDA-Public Use
  Company Number: US-PFIZER INC-2007068365

PATIENT
  Sex: Female
  Weight: 77.272 kg

DRUGS (2)
  1. NORVASC [Suspect]
     Indication: HYPERTENSION
     Dates: start: 20070101, end: 20070701
  2. AMLODIPINE [Suspect]
     Indication: HYPERTENSION

REACTIONS (4)
  - BLOOD PRESSURE INADEQUATELY CONTROLLED [None]
  - DIABETES MELLITUS [None]
  - DRUG INEFFECTIVE [None]
  - OEDEMA PERIPHERAL [None]
